FAERS Safety Report 8534570-9 (Version None)
Quarter: 2012Q3

REPORT INFORMATION
  Report Type: 
  Country: None (occurrence: None)
  Receive Date: 20120724
  Receipt Date: 20120710
  Transmission Date: 20120928
  Serious: No
  Sender: FDA-Public Use
  Company Number: US-ASTRAZENECA-2012SE47862

PATIENT
  Age: 84 Year
  Sex: Female

DRUGS (28)
  1. AMITRIPTYLINE HYDROCHLORIDE [Concomitant]
     Route: 048
  2. CETIRIZINE HCL [Concomitant]
     Route: 048
  3. PREDNISONE [Concomitant]
     Route: 048
  4. VITAMIN D [Concomitant]
     Route: 048
  5. CYANOCOBALAMIN [Concomitant]
     Dosage: 1000MCG/ML, EVERY MONTH
     Route: 030
  6. LEVOTHYROXINE SODIUM [Concomitant]
     Route: 048
  7. LORAZEPAM [Concomitant]
     Indication: NEURALGIA
     Route: 048
  8. MUCINEX [Concomitant]
     Route: 048
  9. ASCORBIC ACID [Concomitant]
     Route: 048
  10. ALBUTEROL SULFATE [Concomitant]
     Indication: WHEEZING
     Dosage: 2.5MG/0.5ML, FOUR TIMES A DAY AS NEEDED
     Route: 055
  11. CARVEDILOL [Concomitant]
     Route: 048
  12. DIGOXIN [Concomitant]
     Route: 048
  13. FAMOTIDINE [Concomitant]
     Route: 048
  14. NEXIUM [Concomitant]
     Route: 048
  15. ALBUTEROL SULFATE [Concomitant]
     Indication: DYSPNOEA
     Dosage: 2.5MG/0.5ML, FOUR TIMES A DAY AS NEEDED
     Route: 055
  16. CLOTRIMAZOLE AND BETAMETHASONE DIPROPIONATE [Concomitant]
     Dosage: 1 TO 0.5% TWICE DAILY AS NEEDED
     Route: 061
  17. PRADAXA [Concomitant]
     Route: 048
  18. AMOXICILLIN [Concomitant]
     Route: 048
  19. LEVOFLOXACIN [Concomitant]
     Route: 048
  20. MECLIZINE [Concomitant]
     Indication: DIZZINESS
     Dosage: 1-2 TABLETS EVERY SIX HOURS AS NEEDED
     Route: 048
  21. ZOLPIDEM [Concomitant]
     Route: 048
  22. CALCIUM CARBONATE [Concomitant]
     Dosage: 600MG(1500MG), TWICE DAILY
     Route: 048
  23. OMEPRAZOLE [Concomitant]
     Route: 048
  24. ATACAND [Suspect]
     Route: 048
  25. CHLORPHENIRAMINE-PHENYLEPH-DM [Concomitant]
     Dosage: 2.5-15MG/5ML, 10 ML EVERY FOUR HOURS
     Route: 048
  26. ENALAPRIL MALEATE [Concomitant]
     Route: 048
  27. GABAPENTIN [Concomitant]
     Route: 048
  28. LORTAB [Concomitant]
     Dosage: 5-500MG, 1-2 TABLET EVERY SIX HOURS
     Route: 048

REACTIONS (2)
  - DRUG HYPERSENSITIVITY [None]
  - HYPOTENSION [None]
